FAERS Safety Report 10527366 (Version 1)
Quarter: 2014Q4

REPORT INFORMATION
  Report Type: Spontaneous
  Country: US (occurrence: None)
  Receive Date: 20141016
  Receipt Date: 20141016
  Transmission Date: 20150528
  Serious: Yes (Death)
  Sender: FDA-Public Use
  Company Number: None

PATIENT
  Age: 73 Year
  Sex: Male

DRUGS (8)
  1. ADALAT CD [Concomitant]
  2. PROGRAF [Concomitant]
     Active Substance: TACROLIMUS\TACROLIMUS ANHYDROUS
  3. GLIPIZIDE. [Concomitant]
     Active Substance: GLIPIZIDE
  4. GLEEVEC [Suspect]
     Active Substance: IMATINIB MESYLATE
     Indication: LEUKAEMIA
     Route: 048
     Dates: start: 20130627, end: 20140926
  5. WALGREENS SYRINES [Concomitant]
  6. ACCU CHEK ??? TEST STRIPS [Concomitant]
  7. INSULIN BEEF CRY [Concomitant]
  8. GLEEVEC 100MG [Concomitant]

REACTIONS (2)
  - Neoplasm malignant [None]
  - Disease complication [None]

NARRATIVE: CASE EVENT DATE: 20140926
